FAERS Safety Report 9009663 (Version 2)
Quarter: 2013Q1

REPORT INFORMATION
  Report Type: Spontaneous
  Country: JP (occurrence: JP)
  Receive Date: 20130110
  Receipt Date: 20130125
  Transmission Date: 20140127
  Serious: Yes (Other)
  Sender: FDA-Public Use
  Company Number: JP-PFIZER INC-2013011375

PATIENT
  Age: 57 Year
  Sex: Male

DRUGS (8)
  1. GABAPEN [Suspect]
     Dosage: 1400MG DAILY
     Route: 048
  2. TEGRETOL [Concomitant]
     Dosage: UNK
  3. ARTIST [Concomitant]
     Dosage: UNK
  4. NIFEDIPINE [Concomitant]
     Dosage: UNK
  5. ATORVASTATIN [Concomitant]
     Dosage: UNK
  6. TAKEPRON [Concomitant]
     Dosage: UNK
  7. TRAMCET [Concomitant]
     Dosage: UNK
  8. METHYCOBAL [Concomitant]
     Dosage: UNK

REACTIONS (1)
  - Cerebellar atrophy [Unknown]
